FAERS Safety Report 5385634-2 (Version None)
Quarter: 2007Q3

REPORT INFORMATION
  Report Type: 
  Country: None (occurrence: None)
  Receive Date: 20070712
  Receipt Date: 20070704
  Transmission Date: 20080115
  Serious: Yes (Other)
  Sender: FDA-Public Use
  Company Number: B0477936A

PATIENT
  Age: 24 Year
  Sex: Female
  Weight: 49 kg

DRUGS (3)
  1. PANADOL [Suspect]
     Dosage: 1G PER DAY
     Route: 048
     Dates: start: 20070326, end: 20070326
  2. UTROGESTAN [Suspect]
     Indication: ENDOCRINE DISORDER
     Dosage: 200MG PER DAY
     Route: 048
     Dates: start: 20070324
  3. EUTHYROX [Suspect]
     Indication: HYPOTHYROIDISM
     Dosage: .075MCG PER DAY
     Route: 048
     Dates: start: 20041101

REACTIONS (9)
  - AMNESIA [None]
  - ASTHENIA [None]
  - DEPRESSED LEVEL OF CONSCIOUSNESS [None]
  - DIZZINESS [None]
  - HEART RATE INCREASED [None]
  - HYPOVENTILATION [None]
  - MEMORY IMPAIRMENT [None]
  - PALPITATIONS [None]
  - RESPIRATORY RATE INCREASED [None]
